FAERS Safety Report 12729000 (Version 3)
Quarter: 2016Q4

REPORT INFORMATION
  Report Type: Report from Study
  Country: US (occurrence: US)
  Receive Date: 20160909
  Receipt Date: 20161212
  Transmission Date: 20170207
  Serious: No
  Sender: FDA-Public Use
  Company Number: GXBR2016US002715

PATIENT
  Sex: Female

DRUGS (2)
  1. OMNITROPE [Suspect]
     Active Substance: SOMATROPIN
     Indication: HYPOPITUITARISM
     Dosage: 0.4MG AM / 0.3MG PM, QD
     Route: 065
     Dates: start: 201412
  2. OMNITROPE [Suspect]
     Active Substance: SOMATROPIN
     Indication: HYPOGLYCAEMIA

REACTIONS (2)
  - Blood growth hormone abnormal [Not Recovered/Not Resolved]
  - Blood glucose decreased [Not Recovered/Not Resolved]
